FAERS Safety Report 8000229-X (Version None)
Quarter: 2011Q4

REPORT INFORMATION
  Report Type: 
  Country: None (occurrence: None)
  Receive Date: 20111123
  Receipt Date: 20111005
  Transmission Date: 20120403
  Serious: Yes (Other)
  Sender: FDA-Public Use
  Company Number: 336682

PATIENT
  Age: 62 Year
  Sex: Female
  Weight: 102 kg

DRUGS (3)
  1. LANTUS [Concomitant]
  2. VICTOZA [Suspect]
     Indication: TYPE 2 DIABETES MELLITUS
     Dosage: 1.2 MG, QD, SUBCUTANEOUS
     Route: 058
     Dates: start: 20110801
  3. HUMALOG [Concomitant]

REACTIONS (2)
  - SCIATIC NERVE INJURY [None]
  - BACK PAIN [None]
